FAERS Safety Report 11950915 (Version 1)
Quarter: 2016Q1

REPORT INFORMATION
  Report Type: Spontaneous
  Country: US (occurrence: US)
  Receive Date: 20160126
  Receipt Date: 20160126
  Transmission Date: 20160526
  Serious: No
  Sender: FDA-Public Use
  Company Number: US-PFIZER INC-2016026021

PATIENT
  Age: 72 Year
  Sex: Female

DRUGS (1)
  1. IBRANCE [Suspect]
     Active Substance: PALBOCICLIB
     Indication: BREAST CANCER FEMALE
     Dosage: 125 MG, CYCLIC
     Dates: start: 20160108

REACTIONS (5)
  - Blood glucose increased [Unknown]
  - Nausea [Unknown]
  - Product use issue [Unknown]
  - Fatigue [Unknown]
  - Dizziness [Unknown]
